FAERS Safety Report 10307565 (Version 3)
Quarter: 2014Q3

REPORT INFORMATION
  Report Type: Spontaneous
  Country: JP (occurrence: JP)
  Receive Date: 20140716
  Receipt Date: 20140826
  Transmission Date: 20150326
  Serious: Yes (Death, Other)
  Sender: FDA-Public Use
  Company Number: JP-OTSUKA-JP-2014-13786

PATIENT

DRUGS (11)
  1. PLETAAL [Suspect]
     Active Substance: CILOSTAZOL
     Indication: LATERAL MEDULLARY SYNDROME
     Dosage: 100 MG MILLIGRAM(S), DAILY DOSE
     Route: 051
     Dates: start: 20121229, end: 20121230
  2. ROZEREM [Concomitant]
     Active Substance: RAMELTEON
     Indication: PRODUCT USED FOR UNKNOWN INDICATION
     Dosage: 8 MG MILLIGRAM(S), DAILY DOSE
     Route: 051
     Dates: start: 20130115
  3. PLETAAL [Suspect]
     Active Substance: CILOSTAZOL
     Dosage: 200 MG MILLIGRAM(S), DAILY DOSE
     Route: 048
     Dates: end: 20140506
  4. DESYREL [Concomitant]
     Active Substance: TRAZODONE HYDROCHLORIDE
     Dosage: 50 MG MILLIGRAM(S), DAILY DOSE
     Route: 048
  5. ZOLPIDEM TARTRATE. [Concomitant]
     Active Substance: ZOLPIDEM TARTRATE
     Dosage: 5 MG MILLIGRAM(S), DAILY DOSE
     Route: 048
  6. URIEF [Concomitant]
     Active Substance: SILODOSIN
     Indication: PRODUCT USED FOR UNKNOWN INDICATION
     Dosage: 8 MG MILLIGRAM(S), DAILY DOSE
     Route: 051
     Dates: start: 20130119
  7. DESYREL [Concomitant]
     Active Substance: TRAZODONE HYDROCHLORIDE
     Indication: PRODUCT USED FOR UNKNOWN INDICATION
     Dosage: 50 MG MILLIGRAM(S), DAILY DOSE
     Route: 051
     Dates: start: 20130121
  8. PLETAAL [Suspect]
     Active Substance: CILOSTAZOL
     Dosage: 200 MG MILLIGRAM(S), DAILY DOSE
     Route: 051
     Dates: start: 20121231
  9. ZOLPIDEM TARTRATE. [Concomitant]
     Active Substance: ZOLPIDEM TARTRATE
     Indication: PRODUCT USED FOR UNKNOWN INDICATION
     Dosage: 5 MG MILLIGRAM(S), DAILY DOSE
     Route: 051
     Dates: start: 20130114
  10. ROZEREM [Concomitant]
     Active Substance: RAMELTEON
     Dosage: 8 MG MILLIGRAM(S), DAILY DOSE
     Route: 048
  11. URIEF [Concomitant]
     Active Substance: SILODOSIN
     Dosage: 8 MG MILLIGRAM(S), DAILY DOSE
     Route: 048
     Dates: end: 20140506

REACTIONS (1)
  - Interstitial lung disease [Fatal]

NARRATIVE: CASE EVENT DATE: 20140506
